FAERS Safety Report 10296867 (Version 1)
Quarter: 2014Q3

REPORT INFORMATION
  Report Type: Spontaneous
  Country: US (occurrence: None)
  Receive Date: 20140708
  Receipt Date: 20140708
  Transmission Date: 20150326
  Serious: Yes (Hospitalization)
  Sender: FDA-Public Use
  Company Number: None

PATIENT
  Age: 62 Year
  Sex: Female
  Weight: 83.8 kg

DRUGS (12)
  1. DIPHENHYDRAMINE HCL [Concomitant]
     Active Substance: DIPHENHYDRAMINE HYDROCHLORIDE
  2. LEVOTHYROXINE SODIUM. [Concomitant]
     Active Substance: LEVOTHYROXINE SODIUM
  3. CALCIUM [Concomitant]
     Active Substance: CALCIUM
  4. HYDROCHLOROTHIAZIDE. [Concomitant]
     Active Substance: HYDROCHLOROTHIAZIDE
  5. MYCOPHENOLATE MOFETIL. [Concomitant]
     Active Substance: MYCOPHENOLATE MOFETIL
  6. ONDANSETRON [Concomitant]
     Active Substance: ONDANSETRON
  7. PREDNISOLONE ACETATE. [Concomitant]
     Active Substance: PREDNISOLONE ACETATE
  8. PREDNISONE. [Concomitant]
     Active Substance: PREDNISONE
  9. SULFAMETHOXAZIDE-TRIMETHOPRIM [Concomitant]
  10. ATENOLOL. [Concomitant]
     Active Substance: ATENOLOL
  11. METHOTREXATE [Suspect]
     Active Substance: METHOTREXATE
  12. BENADRYL [Concomitant]
     Active Substance: DIPHENHYDRAMINE HYDROCHLORIDE

REACTIONS (1)
  - Lymphocyte count decreased [None]

NARRATIVE: CASE EVENT DATE: 20140630
